FAERS Safety Report 4498676-6 (Version None)
Quarter: 2004Q4

REPORT INFORMATION
  Report Type: 
  Country: None (occurrence: None)
  Receive Date: 20041111
  Receipt Date: 20041101
  Transmission Date: 20050328
  Serious: Yes (Other)
  Sender: FDA-Public Use
  Company Number: GB-ABBOTT-04P-167-0279640-00

PATIENT
  Age: 23 Year
  Sex: Female
  Weight: 83 kg

DRUGS (2)
  1. SIBUTRAMINE [Suspect]
     Indication: WEIGHT DECREASED
     Route: 048
     Dates: start: 20040504, end: 20040704
  2. FLURBIPROFEN [Concomitant]
     Indication: DRUG USE FOR UNKNOWN INDICATION
     Dates: end: 20040907

REACTIONS (3)
  - AGGRESSION [None]
  - ANGER [None]
  - IRRITABILITY [None]
